FAERS Safety Report 4381349-8 (Version None)
Quarter: 2004Q2

REPORT INFORMATION
  Report Type: 
  Country: None (occurrence: None)
  Receive Date: 20040616
  Receipt Date: 20040528
  Transmission Date: 20050107
  Serious: Yes (Other)
  Sender: FDA-Public Use
  Company Number: USA040156630

PATIENT
  Age: 57 Year
  Sex: Female
  Weight: 54 kg

DRUGS (20)
  1. FORTEO [Suspect]
     Indication: OSTEOMALACIA
     Dosage: 20 UG/DAY
     Dates: start: 20031229
  2. DURAGESIC [Concomitant]
  3. MS CONTIN [Concomitant]
  4. ROBAXIN [Concomitant]
  5. PREDNISONE [Concomitant]
  6. PREMARIN [Concomitant]
  7. PAXIL [Concomitant]
  8. ZANTAC [Concomitant]
  9. CELEBREX [Concomitant]
  10. SPIRONOLACTONE [Concomitant]
  11. LASIX [Concomitant]
  12. POTASSIUM [Concomitant]
  13. XANAX [Concomitant]
  14. CALCIUM AND VITAMIN D [Concomitant]
  15. RITALIN [Concomitant]
  16. VERAPAMIL [Concomitant]
  17. ATIVAN [Concomitant]
  18. THYROXINAL (LEVOTHYROXINE SODIUM) [Concomitant]
  19. DILAUDID [Concomitant]
  20. VALIUM [Concomitant]

REACTIONS (13)
  - APPLICATION SITE DERMATITIS [None]
  - FAILURE OF IMPLANT [None]
  - FALSE POSITIVE LABORATORY RESULT [None]
  - FRACTURE NONUNION [None]
  - HEADACHE [None]
  - ILIUM FRACTURE [None]
  - IMPAIRED HEALING [None]
  - OSTEOMALACIA [None]
  - PAIN EXACERBATED [None]
  - PHARMACEUTICAL PRODUCT COMPLAINT [None]
  - POST PROCEDURAL COMPLICATION [None]
  - RIB FRACTURE [None]
  - SCOLIOSIS [None]
